FAERS Safety Report 11096008 (Version 3)
Quarter: 2015Q3

REPORT INFORMATION
  Report Type: Spontaneous
  Country: JP (occurrence: None)
  Receive Date: 20150505
  Receipt Date: 20150805
  Transmission Date: 20151125
  Serious: Yes (Other)
  Sender: FDA-Public Use
  Company Number: ABR_02180_2015

PATIENT
  Age: 70 Year
  Sex: Female

DRUGS (2)
  1. GLIADEL [Suspect]
     Active Substance: CARMUSTINE
     Indication: MALIGNANT GLIOMA
     Dosage: 8 TOTAL INTRACEREBRAL
     Dates: start: 20150420
  2. DECADRON [Concomitant]
     Active Substance: DEXAMETHASONE

REACTIONS (3)
  - Brain oedema [None]
  - Paralysis [None]
  - Monoplegia [None]

NARRATIVE: CASE EVENT DATE: 20150422
